FAERS Safety Report 6527148-X (Version None)
Quarter: 2009Q4

REPORT INFORMATION
  Report Type: 
  Country: None (occurrence: None)
  Receive Date: 20091222
  Receipt Date: 20091022
  Transmission Date: 20100525
  Serious: No
  Sender: FDA-Public Use
  Company Number: ALL1-2009-03308

PATIENT
  Age: 21 Year
  Sex: Female
  Weight: 54.4 kg

DRUGS (1)
  1. VYVANSE [Suspect]
     Indication: ATTENTION DEFICIT/HYPERACTIVITY DISORDER
     Dosage: 70MG, ORAL
     Route: 048
     Dates: start: 20091019

REACTIONS (8)
  - DRUG ABUSE [None]
  - DRUG EXPOSURE DURING PREGNANCY [None]
  - INSOMNIA [None]
  - INTENTIONAL OVERDOSE [None]
  - PAIN [None]
  - PRURITUS GENERALISED [None]
  - RASH GENERALISED [None]
  - TIC [None]
